FAERS Safety Report 6072901-2 (Version None)
Quarter: 2009Q1

REPORT INFORMATION
  Report Type: 
  Country: None (occurrence: None)
  Receive Date: 20090205
  Receipt Date: 20090121
  Transmission Date: 20090719
  Serious: Yes (Hospitalization)
  Sender: FDA-Public Use
  Company Number: 09P-062-0499084-00

PATIENT
  Age: 11 Month
  Sex: Male

DRUGS (4)
  1. SYNAGIS [Suspect]
     Indication: ANTIVIRAL PROPHYLAXIS
     Dosage: (150 MG) INTRAMUSCULAR
     Route: 030
     Dates: start: 20070101, end: 20070101
  2. SYNAGIS [Suspect]
     Indication: IMMUNISATION
     Dosage: (150 MG) INTRAMUSCULAR
     Route: 030
     Dates: start: 20070101, end: 20070101
  3. SYNAGIS [Suspect]
     Indication: ANTIVIRAL PROPHYLAXIS
     Dosage: (150 MG) INTRAMUSCULAR
     Route: 030
     Dates: start: 20081001, end: 20081001
  4. SYNAGIS [Suspect]
     Indication: IMMUNISATION
     Dosage: (150 MG) INTRAMUSCULAR
     Route: 030
     Dates: start: 20081001, end: 20081001

REACTIONS (3)
  - CHILLS [None]
  - MUSCLE SPASMS [None]
  - SHOCK [None]
